FAERS Safety Report 20229656 (Version 1)
Quarter: 2021Q4

REPORT INFORMATION
  Report Type: Report from Study
  Country: DE (occurrence: DE)
  Receive Date: 20211226
  Receipt Date: 20211226
  Transmission Date: 20220303
  Serious: Yes (Hospitalization)
  Sender: FDA-Public Use
  Company Number: DE-SAKK-2018SA263204AA

PATIENT
  Age: 63 Year
  Sex: Female
  Weight: 73 kg

DRUGS (18)
  1. AFLIBERCEPT [Suspect]
     Active Substance: AFLIBERCEPT
     Indication: Rectal cancer
     Dosage: 290 MG, QCY
     Route: 042
     Dates: start: 20180911, end: 20180911
  2. AFLIBERCEPT [Suspect]
     Active Substance: AFLIBERCEPT
     Indication: Rectal cancer
     Dosage: 290 MG, QCY
     Route: 042
     Dates: start: 20180911, end: 20180911
  3. INVESTIGATIONAL PRODUCT [Suspect]
     Active Substance: INVESTIGATIONAL PRODUCT
     Indication: Rectal cancer
     Dosage: 290 MG, QCY
     Route: 042
     Dates: start: 20180911, end: 20180911
  4. PLACEBO [Suspect]
     Active Substance: UNSPECIFIED INGREDIENT
     Indication: Rectal cancer
     Dosage: 290 MG, QCY
     Route: 042
     Dates: start: 20180911, end: 20180911
  5. AFLIBERCEPT [Suspect]
     Active Substance: AFLIBERCEPT
     Dosage: 290 MG, QCY
     Route: 042
     Dates: start: 20180814, end: 20180814
  6. AFLIBERCEPT [Suspect]
     Active Substance: AFLIBERCEPT
     Dosage: 290 MG, QCY
     Route: 042
     Dates: start: 20180814, end: 20180814
  7. INVESTIGATIONAL PRODUCT [Suspect]
     Active Substance: INVESTIGATIONAL PRODUCT
     Dosage: 290 MG, QCY
     Route: 042
     Dates: start: 20180814, end: 20180814
  8. PLACEBO [Suspect]
     Active Substance: UNSPECIFIED INGREDIENT
     Dosage: 290 MG, QCY
     Route: 042
     Dates: start: 20180814, end: 20180814
  9. FLUOROURACIL [Suspect]
     Active Substance: FLUOROURACIL
     Indication: Rectal cancer
     Dosage: 4940 MG, QCY
     Route: 042
     Dates: start: 20180913, end: 20180913
  10. FLUOROURACIL [Suspect]
     Active Substance: FLUOROURACIL
     Dosage: 4940 MG, QCY
     Route: 042
     Dates: start: 20180814, end: 20180814
  11. OXALIPLATIN [Suspect]
     Active Substance: OXALIPLATIN
     Indication: Rectal cancer
     Dosage: 150 MG, QCY
     Route: 042
     Dates: start: 20180911, end: 20180911
  12. OXALIPLATIN [Suspect]
     Active Substance: OXALIPLATIN
     Dosage: 150 MG, QCY
     Route: 042
     Dates: start: 20180814, end: 20180814
  13. LEUCOVORIN [Suspect]
     Active Substance: LEUCOVORIN
     Indication: Rectal cancer
     Dosage: 620 MG, QCY
     Route: 042
     Dates: start: 20180911, end: 20180911
  14. LEUCOVORIN [Suspect]
     Active Substance: LEUCOVORIN
     Dosage: 620 MG, QCY
     Route: 042
     Dates: start: 20180814, end: 20180814
  15. GRANISETRON [Concomitant]
     Active Substance: GRANISETRON
     Dosage: 1 MG, QCY
     Route: 065
     Dates: start: 20180814, end: 20181023
  16. DEXAMETHASONE [Concomitant]
     Active Substance: DEXAMETHASONE
     Dosage: 8 MG, QCY
     Route: 065
     Dates: start: 20180814, end: 20181023
  17. DEXPANTHENOL [Concomitant]
     Active Substance: DEXPANTHENOL
     Dosage: UNK UNK, PRN
     Route: 065
     Dates: start: 20180817, end: 20180925
  18. ZENTRAGRESS [Concomitant]
     Dosage: UNK UNK, BID
     Route: 065
     Dates: start: 20180911

REACTIONS (2)
  - Nausea [Recovered/Resolved]
  - Ear pain [Recovered/Resolved]

NARRATIVE: CASE EVENT DATE: 20180911
